FAERS Safety Report 18070328 (Version 1)
Quarter: 2020Q3

REPORT INFORMATION
  Report Type: Other
  Country: TW (occurrence: TW)
  Receive Date: 20200727
  Receipt Date: 20200727
  Transmission Date: 20201103
  Serious: Yes (Death, Other)
  Sender: FDA-Public Use
  Company Number: TW-HEALTHCARE PHARMACEUTICALS LTD.-2087755

PATIENT
  Age: 48 Year
  Sex: Female
  Weight: 90 kg

DRUGS (3)
  1. PAZOPANIB [Suspect]
     Active Substance: PAZOPANIB
     Route: 065
  2. NIVOLUMAB [Suspect]
     Active Substance: NIVOLUMAB
     Route: 065
  3. DOXORUBICIN HYDROCHLORIDE. [Suspect]
     Active Substance: DOXORUBICIN HYDROCHLORIDE
     Indication: HEPATIC ANGIOSARCOMA
     Route: 065

REACTIONS (3)
  - Therapy non-responder [Unknown]
  - Hepatic failure [Fatal]
  - Disseminated intravascular coagulation [Fatal]
